FAERS Safety Report 6634745-X (Version None)
Quarter: 2010Q1

REPORT INFORMATION
  Report Type: 
  Country: None (occurrence: None)
  Receive Date: 20100225
  Receipt Date: 20090707
  Transmission Date: 20100710
  Serious: No
  Sender: FDA-Public Use
  Company Number: 2009-00601

PATIENT
  Age: 59 Year
  Sex: Female
  Weight: 57.1532 kg

DRUGS (5)
  1. ZICAM COLD REMEDY GEL SWABS [Suspect]
     Dosage: SPORADIC, 6 YEARS
     Dates: start: 20030101
  2. ZICAM COLD REMEDY GEL SWABS [Suspect]
     Dosage: SPORADIC, 6 YEARS
     Dates: start: 20030101
  3. ZICAM EXTREME CONGESTION NASAL GEL [Suspect]
     Dosage: SPORADIC
     Dates: start: 20030101
  4. ZICAM ALLERGY RELIEF NASAL GEL [Suspect]
     Dosage: SPORADIC
     Dates: start: 20030101
  5. HERBAL SUPPLEMENTS [Concomitant]

REACTIONS (2)
  - AGEUSIA [None]
  - ANOSMIA [None]
